FAERS Safety Report 14726454 (Version 1)
Quarter: 2018Q2

REPORT INFORMATION
  Report Type: Spontaneous
  Country: US (occurrence: US)
  Receive Date: 20180402
  Receipt Date: 20180402
  Transmission Date: 20180711
  Serious: No
  Sender: FDA-Public Use
  Company Number: None

PATIENT
  Age: 61 Year
  Sex: Female

DRUGS (1)
  1. TRACLEER [Suspect]
     Active Substance: BOSENTAN
     Indication: PULMONARY ARTERIAL HYPERTENSION
     Route: 048
     Dates: start: 20141212

REACTIONS (5)
  - Dizziness [None]
  - Dysphagia [None]
  - Dyspnoea [None]
  - Chest pain [None]
  - Fall [None]

NARRATIVE: CASE EVENT DATE: 20180325
